FAERS Safety Report 25728349 (Version 1)
Quarter: 2025Q3

REPORT INFORMATION
  Report Type: Spontaneous
  Country: PH (occurrence: PH)
  Receive Date: 20250826
  Receipt Date: 20250826
  Transmission Date: 20251021
  Serious: Yes (Life-Threatening, Other)
  Sender: PFIZER
  Company Number: PH-PFIZER INC-PV202500102010

PATIENT
  Age: 69 Year
  Sex: Female

DRUGS (3)
  1. MEROPENEM [Suspect]
     Active Substance: MEROPENEM
     Indication: Klebsiella infection
     Route: 042
  2. MEROPENEM [Suspect]
     Active Substance: MEROPENEM
     Dosage: 500 MG, 3X/DAY (EVERY 8 HOURS)
     Route: 042
  3. LEVOFLOXACIN [Suspect]
     Active Substance: LEVOFLOXACIN
     Indication: Klebsiella infection
     Dosage: 750 MG, 1X/DAY (EVERY 24 HOURS)
     Route: 042

REACTIONS (1)
  - Drug ineffective [Unknown]
